FAERS Safety Report 7729208-4 (Version None)
Quarter: 2011Q3

REPORT INFORMATION
  Report Type: 
  Country: None (occurrence: None)
  Receive Date: 20110906
  Receipt Date: 20110829
  Transmission Date: 20111222
  Serious: No
  Sender: FDA-Public Use
  Company Number: US-PFIZER INC-2011201520

PATIENT
  Sex: Female

DRUGS (3)
  1. LITHIUM CARBONATE [Suspect]
     Dosage: UNK
  2. PRISTIQ [Suspect]
     Dosage: UNK
  3. SEROQUEL [Suspect]

REACTIONS (7)
  - PYREXIA [None]
  - FATIGUE [None]
  - NAUSEA [None]
  - CIRCUMSTANCE OR INFORMATION CAPABLE OF LEADING TO MEDICATION ERROR [None]
  - HOT FLUSH [None]
  - HEADACHE [None]
  - FEELING JITTERY [None]
